FAERS Safety Report 5853215-X (Version None)
Quarter: 2008Q3

REPORT INFORMATION
  Report Type: 
  Country: None (occurrence: None)
  Receive Date: 20080821
  Receipt Date: 20080124
  Transmission Date: 20090109
  Serious: Yes (Hospitalization)
  Sender: FDA-Public Use
  Company Number: DE-ELI_LILLY_AND_COMPANY-DE200801005770

PATIENT
  Sex: Male
  Weight: 90 kg

DRUGS (12)
  1. PEMETREXED [Suspect]
     Indication: NON-SMALL CELL LUNG CANCER
     Dosage: 1000 MG, UNK
     Dates: start: 20070719
  2. CISPLATIN [Suspect]
     Indication: NON-SMALL CELL LUNG CANCER
     Dosage: 150 MG, UNK
     Dates: start: 20070719
  3. ALLOPURINOL [Concomitant]
     Dosage: 300 MG, EACH MORNING
     Dates: start: 20071112
  4. NIFEDIPINE [Concomitant]
     Dosage: 20 MG, 2/D
     Dates: start: 20071112
  5. ASPIRIN [Concomitant]
     Dosage: 100 MG, DAILY (1/D)
     Dates: start: 20071112
  6. METOCLOPRAMIDE [Concomitant]
     Dosage: 20 D/F, UNKNOWN
     Dates: start: 20071112
  7. BETA-ACETYLDIGOXIN [Concomitant]
     Dosage: 0.2 MG, DAILY (1/D)
     Dates: start: 20071112
  8. METOPROLOL SUCCINATE [Concomitant]
     Dosage: UNK, DAILY (1/D)
     Dates: start: 20071112
  9. ESOMEPRAZOLE [Concomitant]
     Dosage: 20 MG, DAILY (1/D)
     Dates: start: 20071112
  10. ISOSORBIDE DINITRATE [Concomitant]
     Dosage: 40 MG, DAILY (1/D)
     Dates: start: 20071112
  11. HYDROCHLOROTHIAZIDE [Concomitant]
     Dosage: 25 MG, DAILY (1/D)
     Dates: start: 20071112
  12. FOLSAURE [Concomitant]
     Dosage: 0.4 MG, DAILY (1/D)
     Dates: start: 20071112

REACTIONS (2)
  - BLOOD CREATININE INCREASED [None]
  - HYPERKALAEMIA [None]
